FAERS Safety Report 4984088-5 (Version None)
Quarter: 2006Q1

REPORT INFORMATION
  Report Type: 
  Country: None (occurrence: None)
  Receive Date: 20060306
  Receipt Date: 20051231
  Transmission Date: 20060701
  Serious: No
  Sender: FDA-Public Use
  Company Number: 33502

PATIENT

DRUGS (3)
  1. NEVANAC [Suspect]
  2. STEROID [Concomitant]
  3. ANTIBIOTIC [Concomitant]

REACTIONS (2)
  - CORNEAL OPACITY [None]
  - IMPAIRED HEALING [None]
